FAERS Safety Report 8164015-2 (Version None)
Quarter: 2012Q1

REPORT INFORMATION
  Report Type: 
  Country: None (occurrence: None)
  Receive Date: 20120224
  Receipt Date: 20120213
  Transmission Date: 20120608
  Serious: Yes (Other)
  Sender: FDA-Public Use
  Company Number: PHEH2011US008605

PATIENT
  Sex: Female

DRUGS (5)
  1. TASIGNA [Suspect]
     Indication: CHRONIC MYELOID LEUKAEMIA
     Dosage: 300 MG, BID
     Route: 048
     Dates: start: 20111028, end: 20111111
  2. VITAMIN B-12 [Concomitant]
     Dosage: 1000 UG, QD
  3. TRICOR [Concomitant]
     Dosage: 145 MG, QD
     Dates: start: 20000101
  4. NEURONTIN [Concomitant]
     Dosage: 300 NG, QD
     Dates: start: 20011111
  5. ZIAC [Concomitant]
     Dosage: 5 MG, QD
     Dates: start: 20040101

REACTIONS (9)
  - DISCOMFORT [None]
  - OEDEMA PERIPHERAL [None]
  - DIABETES MELLITUS [None]
  - THYROID NEOPLASM [None]
  - GENERAL PHYSICAL HEALTH DETERIORATION [None]
  - RHEUMATOID ARTHRITIS [None]
  - PAIN IN EXTREMITY [None]
  - POLYNEUROPATHY [None]
  - PARAESTHESIA [None]
